FAERS Safety Report 17085097 (Version 2)
Quarter: 2020Q1

REPORT INFORMATION
  Report Type: Spontaneous
  Country: JP (occurrence: JP)
  Receive Date: 20191127
  Receipt Date: 20200306
  Transmission Date: 20200409
  Serious: No
  Sender: FDA-Public Use
  Company Number: JP-BEH-2019109883

PATIENT

DRUGS (1)
  1. SANGLOPOR [Suspect]
     Active Substance: HUMAN IMMUNOGLOBULIN G
     Dosage: 2.5 GRAM
     Route: 065

REACTIONS (1)
  - Hepatitis B surface antibody positive [Unknown]
